FAERS Safety Report 8084412-3 (Version None)
Quarter: 2012Q1

REPORT INFORMATION
  Report Type: 
  Country: None (occurrence: None)
  Receive Date: 20120128
  Receipt Date: 20110207
  Transmission Date: 20120608
  Serious: Yes (Other)
  Sender: FDA-Public Use
  Company Number: US-ABBOTT-11P-163-0703656-00

PATIENT
  Age: 43 Year
  Sex: Female

DRUGS (17)
  1. NORVASC [Concomitant]
     Indication: HYPERTENSION
  2. POTASSIUM [Concomitant]
     Indication: PRODUCT USED FOR UNKNOWN INDICATION
  3. HUMIRA [Suspect]
     Indication: ARTHRITIS ENTEROPATHIC
     Route: 058
     Dates: start: 20080801, end: 20090101
  4. HUMIRA [Suspect]
     Route: 058
     Dates: start: 20090101, end: 20090210
  5. FOLIC ACID [Concomitant]
     Indication: PRODUCT USED FOR UNKNOWN INDICATION
  6. ADVAIR DISKUS 100/50 [Concomitant]
     Indication: ASTHMA
     Dosage: 250/50 MG
     Route: 055
  7. NASONEX [Concomitant]
     Indication: HYPERSENSITIVITY
     Dosage: 2 SPRAYS PER NOSTRIL
     Route: 045
  8. ZYRTEC [Concomitant]
     Indication: HYPERSENSITIVITY
  9. METHOTREXATE [Concomitant]
     Indication: ARTHRITIS ENTEROPATHIC
     Route: 050
     Dates: start: 20101201
  10. METHOTREXATE [Concomitant]
     Route: 048
     Dates: end: 20101201
  11. HUMIRA [Suspect]
     Route: 058
     Dates: start: 20090210
  12. SYNTHROID [Concomitant]
     Indication: HYPOTHYROIDISM
  13. MIRAPEX [Concomitant]
     Indication: RESTLESS LEGS SYNDROME
     Dosage: AT HOUR OF SLEEP
  14. AMITRIPTYLINE HCL [Concomitant]
     Indication: ANXIETY
     Dosage: AT HOUR OF SLEEP
  15. HUMIRA [Suspect]
     Indication: CROHN'S DISEASE
     Route: 058
     Dates: start: 20080401, end: 20080801
  16. PROTONIX [Concomitant]
     Indication: PRODUCT USED FOR UNKNOWN INDICATION
  17. DIOVAN [Concomitant]
     Indication: HYPERTENSION
     Dosage: 160/12.5MG DAILY

REACTIONS (7)
  - PYREXIA [None]
  - SWELLING [None]
  - ARTHRALGIA [None]
  - RESPIRATORY TRACT CONGESTION [None]
  - FREQUENT BOWEL MOVEMENTS [None]
  - UPPER RESPIRATORY TRACT INFECTION [None]
  - COUGH [None]
